FAERS Safety Report 13529133 (Version 1)
Quarter: 2017Q2

REPORT INFORMATION
  Report Type: Spontaneous
  Country: US (occurrence: US)
  Receive Date: 20170509
  Receipt Date: 20170509
  Transmission Date: 20170830
  Serious: Yes (Other)
  Sender: FDA-Public Use
  Company Number: US-ROCHE-1005009

PATIENT
  Age: 44 Year
  Sex: Female
  Weight: 120.76 kg

DRUGS (2)
  1. XOLAIR [Suspect]
     Active Substance: OMALIZUMAB
     Indication: ASTHMA
     Route: 058
     Dates: start: 20110616
  2. XOLAIR [Suspect]
     Active Substance: OMALIZUMAB
     Dosage: DOSE REDUCED
     Route: 058
     Dates: start: 20111018

REACTIONS (2)
  - Pruritus [Recovered/Resolved]
  - Rash [Unknown]

NARRATIVE: CASE EVENT DATE: 20110929
